FAERS Safety Report 4456805-4 (Version None)
Quarter: 2004Q3

REPORT INFORMATION
  Report Type: 
  Country: None (occurrence: None)
  Receive Date: 20040921
  Receipt Date: 20040913
  Transmission Date: 20050211
  Serious: Yes (Death, Other)
  Sender: FDA-Public Use
  Company Number: US-JNJFOC-20040903579

PATIENT
  Age: 45 Year
  Sex: Male

DRUGS (2)
  1. CYCLOBENZAPRINE HYDROCHLORIDE [Suspect]
     Dosage: 600 MG IN 1 TOTAL ORAL
     Route: 048
  2. OXYCODONE/ASPIRIN (PERCOCET-5) [Suspect]
     Dosage: 88-100

REACTIONS (6)
  - ARRHYTHMIA [None]
  - GENERAL PHYSICAL HEALTH DETERIORATION [None]
  - MULTIPLE DRUG OVERDOSE [None]
  - POOR VENOUS ACCESS [None]
  - REFUSAL OF TREATMENT BY RELATIVE [None]
  - SOMNOLENCE [None]
